FAERS Safety Report 24775840 (Version 1)
Quarter: 2024Q4

REPORT INFORMATION
  Report Type: Spontaneous
  Country: US (occurrence: US)
  Receive Date: 20241226
  Receipt Date: 20241226
  Transmission Date: 20250115
  Serious: No
  Sender: ALKEM
  Company Number: US-ALKEM LABORATORIES LIMITED-US-ALKEM-2024-23581

PATIENT
  Age: 46 Year
  Sex: Female

DRUGS (37)
  1. APREMILAST [Suspect]
     Active Substance: APREMILAST
     Indication: Arthritis
     Dosage: UNK
     Route: 065
  2. APREMILAST [Suspect]
     Active Substance: APREMILAST
     Indication: Systemic lupus erythematosus
  3. APREMILAST [Suspect]
     Active Substance: APREMILAST
     Indication: Chronic cutaneous lupus erythematosus
  4. APREMILAST [Suspect]
     Active Substance: APREMILAST
     Indication: Hypocomplementaemia
  5. APREMILAST [Suspect]
     Active Substance: APREMILAST
     Indication: Leukopenia
  6. APREMILAST [Suspect]
     Active Substance: APREMILAST
     Indication: Mouth ulceration
  7. AZATHIOPRINE [Suspect]
     Active Substance: AZATHIOPRINE
     Indication: Arthritis
     Dosage: UNK
     Route: 065
  8. AZATHIOPRINE [Suspect]
     Active Substance: AZATHIOPRINE
     Indication: Systemic lupus erythematosus
  9. AZATHIOPRINE [Suspect]
     Active Substance: AZATHIOPRINE
     Indication: Chronic cutaneous lupus erythematosus
  10. AZATHIOPRINE [Suspect]
     Active Substance: AZATHIOPRINE
     Indication: Hypocomplementaemia
  11. MYCOPHENOLATE MOFETIL [Suspect]
     Active Substance: MYCOPHENOLATE MOFETIL
     Indication: Systemic lupus erythematosus
     Dosage: UNK
     Route: 065
  12. MYCOPHENOLATE MOFETIL [Suspect]
     Active Substance: MYCOPHENOLATE MOFETIL
     Indication: Chronic cutaneous lupus erythematosus
  13. MYCOPHENOLATE MOFETIL [Suspect]
     Active Substance: MYCOPHENOLATE MOFETIL
     Indication: Hypocomplementaemia
  14. MYCOPHENOLATE MOFETIL [Suspect]
     Active Substance: MYCOPHENOLATE MOFETIL
     Indication: Arthritis
  15. BELIMUMAB [Suspect]
     Active Substance: BELIMUMAB
     Indication: Arthritis
     Dosage: UNK
     Route: 065
  16. BELIMUMAB [Suspect]
     Active Substance: BELIMUMAB
     Indication: Systemic lupus erythematosus
  17. BELIMUMAB [Suspect]
     Active Substance: BELIMUMAB
     Indication: Chronic cutaneous lupus erythematosus
  18. BELIMUMAB [Suspect]
     Active Substance: BELIMUMAB
     Indication: Hypocomplementaemia
  19. DAPSONE [Suspect]
     Active Substance: DAPSONE
     Indication: Arthritis
     Dosage: UNK
     Route: 065
  20. DAPSONE [Suspect]
     Active Substance: DAPSONE
     Indication: Systemic lupus erythematosus
  21. DAPSONE [Suspect]
     Active Substance: DAPSONE
     Indication: Chronic cutaneous lupus erythematosus
  22. DAPSONE [Suspect]
     Active Substance: DAPSONE
     Indication: Hypocomplementaemia
  23. DAPSONE [Suspect]
     Active Substance: DAPSONE
     Indication: Mouth ulceration
  24. HYDROXYCHLOROQUINE [Suspect]
     Active Substance: HYDROXYCHLOROQUINE
     Indication: Arthritis
     Dosage: UNK
     Route: 065
  25. HYDROXYCHLOROQUINE [Suspect]
     Active Substance: HYDROXYCHLOROQUINE
     Indication: Systemic lupus erythematosus
  26. HYDROXYCHLOROQUINE [Suspect]
     Active Substance: HYDROXYCHLOROQUINE
     Indication: Chronic cutaneous lupus erythematosus
  27. HYDROXYCHLOROQUINE [Suspect]
     Active Substance: HYDROXYCHLOROQUINE
     Indication: Hypocomplementaemia
  28. HYDROXYCHLOROQUINE [Suspect]
     Active Substance: HYDROXYCHLOROQUINE
     Indication: Leukopenia
  29. HYDROXYCHLOROQUINE [Suspect]
     Active Substance: HYDROXYCHLOROQUINE
     Indication: Mouth ulceration
  30. METHOTREXATE [Suspect]
     Active Substance: METHOTREXATE
     Indication: Arthritis
     Dosage: UNK
     Route: 065
  31. METHOTREXATE [Suspect]
     Active Substance: METHOTREXATE
     Indication: Systemic lupus erythematosus
  32. METHOTREXATE [Suspect]
     Active Substance: METHOTREXATE
     Indication: Chronic cutaneous lupus erythematosus
  33. METHOTREXATE [Suspect]
     Active Substance: METHOTREXATE
     Indication: Hypocomplementaemia
  34. MYCOPHENOLIC ACID [Suspect]
     Active Substance: MYCOPHENOLIC ACID
     Indication: Arthritis
     Dosage: UNK
     Route: 065
  35. MYCOPHENOLIC ACID [Suspect]
     Active Substance: MYCOPHENOLIC ACID
     Indication: Systemic lupus erythematosus
  36. MYCOPHENOLIC ACID [Suspect]
     Active Substance: MYCOPHENOLIC ACID
     Indication: Chronic cutaneous lupus erythematosus
  37. MYCOPHENOLIC ACID [Suspect]
     Active Substance: MYCOPHENOLIC ACID
     Indication: Hypocomplementaemia

REACTIONS (2)
  - Adverse event [Unknown]
  - Drug ineffective [Unknown]
